FAERS Safety Report 8006820-9 (Version None)
Quarter: 2011Q4

REPORT INFORMATION
  Report Type: 
  Country: None (occurrence: None)
  Receive Date: 20111227
  Receipt Date: 20111221
  Transmission Date: 20120403
  Serious: Yes (Other)
  Sender: FDA-Public Use
  Company Number: US-JNJFOC-20111210064

PATIENT
  Age: 41 Year
  Sex: Female

DRUGS (3)
  1. FENTANYL-100 [Suspect]
     Indication: ABDOMINAL ADHESIONS
     Route: 062
  2. FENTANYL-100 [Suspect]
     Indication: ABDOMINAL ADHESIONS
     Route: 062
  3. FENTANYL-100 [Suspect]
     Route: 062

REACTIONS (1)
  - WEIGHT INCREASED [None]
